FAERS Safety Report 23759229 (Version 1)
Quarter: 2024Q2

REPORT INFORMATION
  Report Type: Spontaneous
  Country: US (occurrence: None)
  Receive Date: 20240418
  Receipt Date: 20240418
  Transmission Date: 20240715
  Serious: No
  Sender: FDA-Public Use
  Company Number: US-ROCHE-3348349

PATIENT
  Age: 66 Year
  Sex: Female

DRUGS (2)
  1. ESBRIET [Suspect]
     Active Substance: PIRFENIDONE
     Indication: Interstitial lung disease
     Dosage: ONGOING: YES
     Route: 048
     Dates: start: 202305
  2. ESBRIET [Suspect]
     Active Substance: PIRFENIDONE
     Dosage: SHE TAKE 267 MG THREE TIMES A DAY INSTEAD OF 801 MG THREE TIMES A DAY
     Route: 048

REACTIONS (2)
  - Off label use [Unknown]
  - No adverse event [Unknown]

NARRATIVE: CASE EVENT DATE: 20230510
